FAERS Safety Report 5049852-5 (Version None)
Quarter: 2006Q3

REPORT INFORMATION
  Report Type: 
  Country: None (occurrence: None)
  Receive Date: 20060706
  Receipt Date: 20060620
  Transmission Date: 20061208
  Serious: Yes (Death, Hospitalization)
  Sender: FDA-Public Use
  Company Number: COT_0609_2006

PATIENT
  Age: 61 Year
  Sex: Male
  Weight: 89.8122 kg

DRUGS (12)
  1. VENTAVIS [Suspect]
     Indication: PULMONARY HYPERTENSION
     Dosage: 5 MCG 6XD, IH
     Route: 055
     Dates: start: 20050629
  2. HUMALOG [Concomitant]
  3. NPH ILETIN I (BEEF-PORK) [Concomitant]
  4. SPIRONOLACTONE [Concomitant]
  5. DIGOXIN [Concomitant]
  6. POTASSIUM CHLORIDE [Concomitant]
  7. ADVAIR DISKUS 100/50 [Concomitant]
  8. OCEAN NASAL SPRAY [Concomitant]
  9. MAGNESIUM OXIDE [Concomitant]
  10. COUMADIN [Concomitant]
  11. PROTONIX [Concomitant]
  12. OXYGEN [Concomitant]

REACTIONS (4)
  - EAR HAEMORRHAGE [None]
  - HYPOXIA [None]
  - LETHARGY [None]
  - LEUKAEMIA [None]
